FAERS Safety Report 9890552 (Version 1)
Quarter: 2014Q1

REPORT INFORMATION
  Report Type: Spontaneous
  Country: KR (occurrence: None)
  Receive Date: 20140210
  Receipt Date: 20140210
  Transmission Date: 20141002
  Serious: Yes (Other)
  Sender: FDA-Public Use
  Company Number: 2014P1000838

PATIENT
  Age: 40 Year
  Sex: Female

DRUGS (1)
  1. MITOMYCIN [Suspect]
     Indication: DRUG THERAPY
     Route: 047

REACTIONS (1)
  - Scleromalacia [None]
